FAERS Safety Report 10292094 (Version 1)
Quarter: 2014Q3

REPORT INFORMATION
  Report Type: Spontaneous
  Country: MY (occurrence: MY)
  Receive Date: 20140710
  Receipt Date: 20140710
  Transmission Date: 20150326
  Serious: Yes (Death)
  Sender: FDA-Public Use
  Company Number: MY-JNJFOC-20140706135

PATIENT
  Age: 25 Year
  Sex: Female

DRUGS (9)
  1. EFAVIRENZ [Suspect]
     Active Substance: EFAVIRENZ
     Indication: HIV INFECTION
     Route: 048
  2. TENOFOVIR [Suspect]
     Active Substance: TENOFOVIR
     Indication: HIV INFECTION
     Route: 048
  3. VANCOMYCIN [Suspect]
     Active Substance: VANCOMYCIN
     Indication: SEPSIS
     Route: 042
  4. IMIPENEM [Suspect]
     Active Substance: IMIPENEM
     Indication: SEPSIS
     Route: 042
  5. IMMUNOGLOBULIN [Suspect]
     Active Substance: HUMAN IMMUNOGLOBULIN G
     Indication: GUILLAIN-BARRE SYNDROME
     Route: 042
  6. EMTRICITABINE [Suspect]
     Active Substance: EMTRICITABINE
     Indication: HIV INFECTION
     Route: 048
  7. ITRACONAZOLE. [Suspect]
     Active Substance: ITRACONAZOLE
     Indication: FUNGAEMIA
     Route: 048
  8. AMPHOTERICIN [Suspect]
     Active Substance: AMPHOTERICIN B
     Indication: FUNGAEMIA
     Route: 042
  9. PREDNISOLONE. [Suspect]
     Active Substance: PREDNISOLONE
     Indication: GUILLAIN-BARRE SYNDROME
     Route: 048

REACTIONS (3)
  - Multi-organ disorder [Fatal]
  - Disseminated intravascular coagulation [Fatal]
  - Drug ineffective [Not Recovered/Not Resolved]
